FAERS Safety Report 19402239 (Version 1)
Quarter: 2021Q2

REPORT INFORMATION
  Report Type: Spontaneous
  Country: US (occurrence: US)
  Receive Date: 20210610
  Receipt Date: 20210610
  Transmission Date: 20210717
  Serious: No
  Sender: FDA-Public Use
  Company Number: US-COLLEGIUM PHARMACEUTICAL, INC.-2021CGM00389

PATIENT
  Sex: Female

DRUGS (1)
  1. XTAMPZA ER [Suspect]
     Active Substance: OXYCODONE
     Dosage: 18 MG, EVERY 12 HOURS
     Dates: end: 202101

REACTIONS (3)
  - Headache [Unknown]
  - Nausea [Unknown]
  - Product substitution issue [Recovered/Resolved]
